FAERS Safety Report 5535004-9 (Version None)
Quarter: 2007Q4

REPORT INFORMATION
  Report Type: 
  Country: None (occurrence: None)
  Receive Date: 20071205
  Receipt Date: 20071128
  Transmission Date: 20080405
  Serious: Yes (Hospitalization)
  Sender: FDA-Public Use
  Company Number: BR-GILEAD-2007-0014481

PATIENT
  Sex: Male
  Weight: 56 kg

DRUGS (7)
  1. AMBRISENTAN [Suspect]
     Indication: PULMONARY HYPERTENSION
     Route: 048
     Dates: start: 20051114
  2. PHENPROCOUMON [Concomitant]
     Dates: start: 20060725
  3. FUROSEMIDE [Concomitant]
     Route: 048
     Dates: start: 20071020
  4. FUROSEMIDE [Concomitant]
     Route: 048
     Dates: start: 20071020
  5. SPIRONOLACTONE [Concomitant]
     Route: 048
     Dates: start: 20050901
  6. POTASSIUM CHLORIDE [Concomitant]
     Route: 048
     Dates: start: 20050901
  7. OXYGEN [Concomitant]
     Route: 055
     Dates: start: 20050801

REACTIONS (1)
  - PULMONARY HYPERTENSION [None]
